FAERS Safety Report 15842894 (Version 2)
Quarter: 2019Q1

REPORT INFORMATION
  Report Type: Report from Study
  Country: US (occurrence: US)
  Receive Date: 20190118
  Receipt Date: 20190121
  Transmission Date: 20190417
  Serious: Yes (Other)
  Sender: FDA-Public Use
  Company Number: US-SA-2019SA011731

PATIENT
  Age: 52 Year
  Sex: Female

DRUGS (2)
  1. ZOLPIDEM TARTRATE. [Suspect]
     Active Substance: ZOLPIDEM TARTRATE
     Dosage: UNK
  2. MELATONIN [Suspect]
     Active Substance: MELATONIN
     Dosage: UNK

REACTIONS (2)
  - Hangover [Unknown]
  - Drug dependence [Unknown]

NARRATIVE: CASE EVENT DATE: 20190109
